FAERS Safety Report 5023068-0 (Version None)
Quarter: 2006Q2

REPORT INFORMATION
  Report Type: 
  Country: None (occurrence: None)
  Receive Date: 20060502
  Receipt Date: 20050322
  Transmission Date: 20061013
  Serious: Yes (Hospitalization)
  Sender: FDA-Public Use
  Company Number: PHEH2005US03200

PATIENT
  Sex: Female
  Weight: 93 kg

DRUGS (10)
  1. LOTREL [Suspect]
     Indication: HYPERTENSION
     Dosage: 5 AMLOD/20 MG BENAZ QC, ORAL
     Route: 048
  2. NEXIUM [Suspect]
  3. MOBIC [Concomitant]
  4. METOPROLOL SUCCINATE [Concomitant]
  5. PLAVIX [Concomitant]
  6. LIPITOR /NET/ (ATORVASTATIN CALCIUM) [Concomitant]
  7. ASPIRIN [Concomitant]
  8. NEURONTIN [Concomitant]
  9. LIDODERM [Concomitant]
  10. OXYCONTIN (OXYOCODONE HYDROCHLORIDE) [Concomitant]

REACTIONS (5)
  - INTUBATION [None]
  - LARYNGEAL OBSTRUCTION [None]
  - LARYNGEAL OEDEMA [None]
  - SWELLING FACE [None]
  - SWOLLEN TONGUE [None]
